FAERS Safety Report 6220139-8 (Version None)
Quarter: 2009Q2

REPORT INFORMATION
  Report Type: 
  Country: None (occurrence: None)
  Receive Date: 20090609
  Receipt Date: 20090602
  Transmission Date: 20091009
  Serious: Yes (Hospitalization)
  Sender: FDA-Public Use
  Company Number: GB-AMGEN-QUU346654

PATIENT
  Age: 67 Year
  Sex: Male
  Weight: 76.5 kg

DRUGS (7)
  1. NEULASTA [Suspect]
     Indication: CHEMOTHERAPY
     Route: 058
     Dates: start: 20090430
  2. RITUXIMAB [Concomitant]
     Dates: start: 20090328
  3. CYCLOPHOSPHAMIDE [Concomitant]
     Dates: start: 20090329
  4. DOXORUBICIN HYDROCHLORIDE [Concomitant]
     Dates: start: 20090329
  5. VINCRISTINE [Concomitant]
     Dates: start: 20090329
  6. PREDNISOLONE [Concomitant]
     Dates: start: 20090329
  7. METHOTREXATE [Concomitant]
     Route: 037
     Dates: start: 20090330

REACTIONS (5)
  - CONJUNCTIVAL HAEMORRHAGE [None]
  - DRUG INEFFECTIVE [None]
  - FEBRILE NEUTROPENIA [None]
  - NEUTROPENIC SEPSIS [None]
  - VASCULITIC RASH [None]
